FAERS Safety Report 4428572-1 (Version None)
Quarter: 2004Q3

REPORT INFORMATION
  Report Type: 
  Country: None (occurrence: None)
  Receive Date: 20040818
  Receipt Date: 20040405
  Transmission Date: 20050211
  Serious: Yes (Death, Other)
  Sender: FDA-Public Use
  Company Number: IT-BRISTOL-MYERS SQUIBB COMPANY-12551362

PATIENT

DRUGS (4)
  1. CYCLOPHOSPHAMIDE [Suspect]
     Indication: LYMPHOMA
     Dosage: DAYS 2-6
     Route: 048
  2. ETOPOSIDE [Suspect]
     Indication: LYMPHOMA
     Dosage: DAYS 2, 4 AND 6
     Route: 048
  3. IDARUBICIN HCL [Suspect]
     Indication: LYMPHOMA
     Dosage: DAYS 1, 3 AND 5
     Route: 048
  4. PREDNISONE [Suspect]
     Indication: LYMPHOMA
     Dosage: DAYS 1-5
     Route: 048

REACTIONS (3)
  - DRUG TOXICITY [None]
  - HAEMORRHAGE [None]
  - LYMPHOMA [None]
